FAERS Safety Report 14737118 (Version 1)
Quarter: 2018Q2

REPORT INFORMATION
  Report Type: Spontaneous
  Country: ES (occurrence: ES)
  Receive Date: 20180409
  Receipt Date: 20180409
  Transmission Date: 20180711
  Serious: Yes (Hospitalization)
  Sender: FDA-Public Use
  Company Number: ES-TEVA-2018-ES-876641

PATIENT
  Age: 29 Year
  Sex: Female
  Weight: 70 kg

DRUGS (6)
  1. ETHINYLESTRADIOL W/LEVONORGESTREL [Suspect]
     Active Substance: ETHINYL ESTRADIOL\LEVONORGESTREL
     Indication: CONTRACEPTION
     Dosage: 0.1/0.002 MG/ 24 H
     Route: 065
     Dates: start: 20160517
  2. BUPROPION (1131A) [Suspect]
     Active Substance: BUPROPION
     Route: 065
     Dates: start: 20171121
  3. MIRTAZAPINE (2704A) [Suspect]
     Active Substance: MIRTAZAPINE
     Route: 065
     Dates: start: 20170525
  4. VALPROICO ACIDO (3194A) [Suspect]
     Active Substance: VALPROIC ACID
     Dosage: 333/145 MG/12 H
     Route: 065
     Dates: start: 20160603
  5. DESVENLAFAXINA (8296A) [Suspect]
     Active Substance: DESVENLAFAXINE
     Route: 065
     Dates: start: 20160115
  6. ARIPIPRAZOLE (2933A) [Suspect]
     Active Substance: ARIPIPRAZOLE
     Indication: SCHIZOPHRENIA
     Route: 065
     Dates: start: 20161124

REACTIONS (1)
  - Pulmonary embolism [Unknown]

NARRATIVE: CASE EVENT DATE: 20180131
